FAERS Safety Report 18275808 (Version 1)
Quarter: 2020Q3

REPORT INFORMATION
  Report Type: Spontaneous
  Country: US (occurrence: US)
  Receive Date: 20200917
  Receipt Date: 20200917
  Transmission Date: 20201103
  Serious: Yes (Other)
  Sender: FDA-Public Use
  Company Number: US-CADILA HEALTHCARE LIMITED-US-ZYDUS-055807

PATIENT

DRUGS (4)
  1. PHENYLEPHRINE [Concomitant]
     Active Substance: PHENYLEPHRINE HYDROCHLORIDE
     Indication: MYDRIASIS
     Dosage: 2.5 PERCENT
  2. DEXMEDETOMIDINE. [Suspect]
     Active Substance: DEXMEDETOMIDINE
     Indication: SEDATIVE THERAPY
     Dosage: UNK
     Route: 042
  3. CYCLOPENTOLATE. [Concomitant]
     Active Substance: CYCLOPENTOLATE
     Indication: MYDRIASIS
     Dosage: 1 PERCENT
  4. TROPICAMIDE. [Concomitant]
     Active Substance: TROPICAMIDE
     Indication: MYDRIASIS
     Dosage: 1 PERCENT

REACTIONS (1)
  - Floppy iris syndrome [Recovered/Resolved]
